FAERS Safety Report 25459350 (Version 4)
Quarter: 2025Q3

REPORT INFORMATION
  Report Type: Report from Study
  Country: US (occurrence: US)
  Receive Date: 20250620
  Receipt Date: 20250704
  Transmission Date: 20251021
  Serious: Yes (Hospitalization)
  Sender: SUNOVION
  Company Number: US-SUMITOMO PHARMA SWITZERLAND GMBH-2025SPA006724

PATIENT

DRUGS (6)
  1. ORGOVYX [Suspect]
     Active Substance: RELUGOLIX
     Indication: Prostate cancer
     Dosage: 360 MG, SINGLE
     Route: 048
     Dates: start: 20250521, end: 20250521
  2. ORGOVYX [Suspect]
     Active Substance: RELUGOLIX
     Dosage: 120 MG, QD
     Route: 048
     Dates: start: 20250522
  3. ALBUTEROL SULFATE [Concomitant]
     Active Substance: ALBUTEROL SULFATE
     Route: 055
  4. ASPIRIN [Concomitant]
     Active Substance: ASPIRIN
     Route: 048
  5. ELIQUIS [Concomitant]
     Active Substance: APIXABAN
     Route: 048
  6. METOPROLOL SUCCINATE [Concomitant]
     Active Substance: METOPROLOL SUCCINATE
     Route: 048

REACTIONS (5)
  - Respiration abnormal [Unknown]
  - Blood cholesterol increased [Unknown]
  - Fatigue [Unknown]
  - Diarrhoea [Unknown]
  - Product dose omission issue [Unknown]
